FAERS Safety Report 7702512-1 (Version None)
Quarter: 2011Q3

REPORT INFORMATION
  Report Type: 
  Country: None (occurrence: None)
  Receive Date: 20110823
  Receipt Date: 20110815
  Transmission Date: 20111222
  Serious: No
  Sender: FDA-Public Use
  Company Number: US-BIOGENIDEC-2011BI012730

PATIENT
  Age: 52 Year
  Sex: Female

DRUGS (2)
  1. TYSABRI [Suspect]
     Indication: MULTIPLE SCLEROSIS
     Route: 042
     Dates: start: 20101227, end: 20110325
  2. BENADRYL [Concomitant]
     Indication: PRODUCT USED FOR UNKNOWN INDICATION

REACTIONS (7)
  - BLOOD PRESSURE FLUCTUATION [None]
  - HYPOAESTHESIA [None]
  - TREMOR [None]
  - MOBILITY DECREASED [None]
  - NYSTAGMUS [None]
  - HYPERSENSITIVITY [None]
  - CHILLS [None]
